FAERS Safety Report 19193646 (Version 1)
Quarter: 2021Q2

REPORT INFORMATION
  Report Type: Spontaneous
  Country: US (occurrence: US)
  Receive Date: 20210428
  Receipt Date: 20210428
  Transmission Date: 20210717
  Serious: Yes (Hospitalization)
  Sender: FDA-Public Use
  Company Number: None

PATIENT
  Age: 60 Year
  Sex: Male

DRUGS (1)
  1. CAPECITABINE. [Suspect]
     Active Substance: CAPECITABINE
     Indication: RECTOSIGMOID CANCER
     Dosage: ?          OTHER FREQUENCY:1500 QAM/2000 QPM;?
     Route: 048
     Dates: start: 20210225

REACTIONS (2)
  - Stent placement [None]
  - Therapy interrupted [None]

NARRATIVE: CASE EVENT DATE: 20210423
